FAERS Safety Report 4450731-2 (Version None)
Quarter: 2004Q3

REPORT INFORMATION
  Report Type: 
  Country: None (occurrence: None)
  Receive Date: 20040914
  Receipt Date: 20040914
  Transmission Date: 20050211
  Serious: Yes (Other)
  Sender: FDA-Public Use
  Company Number: None

PATIENT

DRUGS (1)
  1. BROMOCRIPTIN [Suspect]
     Indication: PROLACTINOMA
     Dosage: 25 MG BID

REACTIONS (1)
  - HEADACHE [None]
